FAERS Safety Report 7986984-3 (Version None)
Quarter: 2011Q4

REPORT INFORMATION
  Report Type: 
  Country: None (occurrence: None)
  Receive Date: 20111216
  Receipt Date: 20111206
  Transmission Date: 20120403
  Serious: Yes (Other)
  Sender: FDA-Public Use
  Company Number: US-JNJFOC-20111202737

PATIENT
  Sex: Male
  Weight: 63.5 kg

DRUGS (3)
  1. REMICADE [Suspect]
     Indication: ANKYLOSING SPONDYLITIS
     Route: 042
     Dates: start: 20060101, end: 20110901
  2. METHOTREXATE [Concomitant]
     Indication: ANKYLOSING SPONDYLITIS
     Dosage: 2.5 MG TABLET
     Route: 048
     Dates: end: 20110901
  3. CLARITIN [Concomitant]
     Indication: SEASONAL ALLERGY
     Route: 048

REACTIONS (2)
  - LIGAMENT RUPTURE [None]
  - ADVERSE EVENT [None]
